FAERS Safety Report 5639062-2 (Version None)
Quarter: 2008Q1

REPORT INFORMATION
  Report Type: 
  Country: None (occurrence: None)
  Receive Date: 20080226
  Receipt Date: 20070216
  Transmission Date: 20080703
  Serious: No
  Sender: FDA-Public Use
  Company Number: US-BAUSCH-2006BL006568

PATIENT
  Age: 40 Year
  Sex: Male

DRUGS (1)
  1. FLUNISOLIDE NASAL SOLUTION USP 0.025% [Suspect]
     Indication: NASAL DISORDER
     Route: 045
     Dates: end: 20061101

REACTIONS (4)
  - DRUG INEFFECTIVE [None]
  - EPISTAXIS [None]
  - NASAL DISCOMFORT [None]
  - PHARMACEUTICAL PRODUCT COMPLAINT [None]
